FAERS Safety Report 8371835-8 (Version None)
Quarter: 2012Q2

REPORT INFORMATION
  Report Type: 
  Country: None (occurrence: None)
  Receive Date: 20120518
  Receipt Date: 20120515
  Transmission Date: 20120825
  Serious: Yes (Hospitalization, Other)
  Sender: FDA-Public Use
  Company Number: US-GILEAD-2012-0055040

PATIENT
  Age: 43 Year
  Sex: Male

DRUGS (10)
  1. MEPRON                             /00049601/ [Concomitant]
     Indication: PROPHYLAXIS
     Dosage: 750 MG, QD
  2. LODIN [Concomitant]
  3. VIREAD [Suspect]
     Dosage: Q1W
     Route: 042
  4. ADEFOVIR DIPIVOXIL [Suspect]
     Indication: HEPATITIS B
  5. PREDNISONE [Concomitant]
     Dosage: 60 MG, QD
  6. VIREAD [Suspect]
     Indication: HIV INFECTION
     Dosage: UNK
  7. RESCRIPTOR [Concomitant]
     Indication: HIV INFECTION
  8. IBUPROFEN [Concomitant]
  9. VANCOMYCIN [Concomitant]
     Dosage: 500 MG, UNK
     Route: 042
  10. EPZICOM [Concomitant]
     Indication: HIV INFECTION

REACTIONS (6)
  - RENAL TUBULAR NECROSIS [None]
  - TUBULOINTERSTITIAL NEPHRITIS [None]
  - DRUG INEFFECTIVE [None]
  - RENAL FAILURE ACUTE [None]
  - UNEVALUABLE EVENT [None]
  - RENAL FAILURE CHRONIC [None]
